FAERS Safety Report 8076494-X (Version None)
Quarter: 2011Q4

REPORT INFORMATION
  Report Type: 
  Country: None (occurrence: None)
  Receive Date: 20111221
  Receipt Date: 20110908
  Transmission Date: 20120403
  Serious: Yes (Hospitalization)
  Sender: FDA-Public Use
  Company Number: PHHY2010US48509

PATIENT
  Age: 29 Year
  Sex: Female
  Weight: 84.5 kg

DRUGS (4)
  1. EXJADE [Suspect]
     Indication: SICKLE CELL ANAEMIA
     Dosage: 1625 MG, DAILY, ORAL
     Route: 048
     Dates: start: 20110104
  2. LISINOPRIL [Concomitant]
  3. FOLIC ACID [Concomitant]
  4. VICODIN [Concomitant]

REACTIONS (1)
  - SICKLE CELL ANAEMIA WITH CRISIS [None]
